FAERS Safety Report 23267368 (Version 3)
Quarter: 2023Q4

REPORT INFORMATION
  Report Type: Report from Study
  Country: JP (occurrence: JP)
  Receive Date: 20231206
  Receipt Date: 20231226
  Transmission Date: 20240110
  Serious: Yes (Hospitalization)
  Sender: FDA-Public Use
  Company Number: JP-JNJFOC-20231175371

PATIENT
  Age: 77 Year
  Sex: Male

DRUGS (4)
  1. ERLEADA [Suspect]
     Active Substance: APALUTAMIDE
     Indication: Prostate cancer
     Route: 048
     Dates: start: 20230923, end: 20231121
  2. BEPOTASTINE BESYLATE [Concomitant]
     Active Substance: BEPOTASTINE BESYLATE
     Indication: Product used for unknown indication
     Dosage: IN THE MORNING AND EVENING
     Route: 048
  3. DESLORATADINE [Concomitant]
     Active Substance: DESLORATADINE
     Indication: Pruritus
     Dosage: DOSE UNKNOWN,AT BEDTIME
     Route: 048
     Dates: start: 20231121
  4. HEPARINOID [Concomitant]
     Indication: Product used for unknown indication
     Dosage: DOSE UNKNOWN
     Route: 061

REACTIONS (18)
  - Interstitial lung disease [Recovering/Resolving]
  - Pneumonia [Recovering/Resolving]
  - Pneumothorax [Not Recovered/Not Resolved]
  - Dyspnoea [Recovering/Resolving]
  - Eczema [Not Recovered/Not Resolved]
  - Pruritus [Recovering/Resolving]
  - Blood test abnormal [Not Recovered/Not Resolved]
  - Cough [Not Recovered/Not Resolved]
  - Body temperature increased [Not Recovered/Not Resolved]
  - Chills [Not Recovered/Not Resolved]
  - Decreased appetite [Recovering/Resolving]
  - Hypophagia [Recovering/Resolving]
  - Weight decreased [Not Recovered/Not Resolved]
  - Asthenia [Recovering/Resolving]
  - Scab [Not Recovered/Not Resolved]
  - Dry skin [Not Recovered/Not Resolved]
  - Skin discolouration [Recovering/Resolving]
  - Skin swelling [Recovering/Resolving]

NARRATIVE: CASE EVENT DATE: 20230101
